FAERS Safety Report 7807276-9 (Version None)
Quarter: 2011Q4

REPORT INFORMATION
  Report Type: 
  Country: None (occurrence: None)
  Receive Date: 20111011
  Receipt Date: 20110929
  Transmission Date: 20120403
  Serious: Yes (Hospitalization)
  Sender: FDA-Public Use
  Company Number: JP-AMGEN-JPNCT2011002642

PATIENT
  Age: 55 Year
  Sex: Male
  Weight: 49 kg

DRUGS (19)
  1. PANITUMUMAB [Suspect]
     Indication: COLORECTAL CANCER
     Dosage: UNK UNK, Q2WK
     Route: 041
     Dates: start: 20100907
  2. LEVOLEUCOVORIN CALCIUM [Concomitant]
     Indication: COLORECTAL CANCER
     Dosage: 300 MG, Q2WK
     Route: 041
     Dates: start: 20100907
  3. DECADRON [Concomitant]
     Dosage: UNK
     Route: 048
  4. FLUOROURACIL [Suspect]
     Dosage: 3700 MG, Q2WK
     Route: 041
     Dates: start: 20100907
  5. FLUOROURACIL [Suspect]
     Route: 041
     Dates: start: 20100907, end: 20110308
  6. FLUOROURACIL [Suspect]
     Route: 041
     Dates: start: 20110322
  7. ALOXI [Concomitant]
     Dosage: UNK
     Route: 042
  8. RINDERON-VG [Concomitant]
     Dosage: UNK
     Route: 062
  9. FLUOROURACIL [Suspect]
     Route: 040
     Dates: start: 20100907, end: 20110308
  10. LEVOLEUCOVORIN CALCIUM [Concomitant]
     Route: 041
     Dates: start: 20110322
  11. OXALIPLATIN [Suspect]
     Indication: COLORECTAL CANCER
     Dosage: 130 MG, Q2WK
     Route: 041
     Dates: start: 20100907
  12. MINOCYCLINE HCL [Concomitant]
     Dosage: UNK
     Route: 048
  13. BESOFTEN [Concomitant]
     Dosage: UNK
     Route: 062
  14. OXALIPLATIN [Suspect]
     Route: 041
     Dates: start: 20100907, end: 20110308
  15. PROTECADIN [Concomitant]
     Dosage: UNK
     Route: 048
  16. PYDOXAL [Concomitant]
     Dosage: UNK
     Route: 048
  17. FLUOROURACIL [Suspect]
     Indication: COLORECTAL CANCER
     Dosage: 600 MG, Q2WK
     Route: 040
     Dates: start: 20100907
  18. FLUOROURACIL [Suspect]
     Route: 040
     Dates: start: 20110322
  19. LEVOLEUCOVORIN CALCIUM [Concomitant]
     Route: 041
     Dates: start: 20100907, end: 20110308

REACTIONS (2)
  - GRANULOCYTOPENIA [None]
  - DRY SKIN [None]
